FAERS Safety Report 11536518 (Version 1)
Quarter: 2015Q3

REPORT INFORMATION
  Report Type: Spontaneous
  Country: US (occurrence: US)
  Receive Date: 20150922
  Receipt Date: 20150922
  Transmission Date: 20151125
  Serious: Yes (Death, Hospitalization)
  Sender: FDA-Public Use
  Company Number: US-UNITED THERAPEUTICS-UNT-2015-011362

PATIENT
  Age: 59 Year
  Sex: Male
  Weight: 116.1 kg

DRUGS (2)
  1. REMODULIN [Suspect]
     Active Substance: TREPROSTINIL
     Indication: PULMONARY HYPERTENSION
     Dosage: 0.0075 ?G/KG/MIN, CONTINUING
     Route: 041
     Dates: start: 20150723
  2. REMODULIN [Suspect]
     Active Substance: TREPROSTINIL
     Dosage: 0.022 ?G/KG/MIN, CONTINUING
     Route: 041

REACTIONS (2)
  - Renal failure [Fatal]
  - Chest discomfort [Unknown]

NARRATIVE: CASE EVENT DATE: 201509
